FAERS Safety Report 8599939-5 (Version None)
Quarter: 2012Q3

REPORT INFORMATION
  Report Type: 
  Country: None (occurrence: None)
  Receive Date: 20120816
  Receipt Date: 20120807
  Transmission Date: 20120928
  Serious: Yes (Hospitalization)
  Sender: FDA-Public Use
  Company Number: FR-JNJFOC-20120807712

PATIENT
  Sex: Male

DRUGS (8)
  1. PERINDOPRIL ERBUMINE [Concomitant]
  2. INDAPAMIDE [Concomitant]
  3. ASPIRIN [Concomitant]
  4. XARELTO [Suspect]
     Indication: THROMBOSIS PROPHYLAXIS
     Route: 048
     Dates: start: 20120128, end: 20120222
  5. NEXIUM [Concomitant]
  6. ACETAMINOPHEN [Concomitant]
  7. XARELTO [Suspect]
     Indication: HIP ARTHROPLASTY
     Route: 048
     Dates: start: 20120128, end: 20120222
  8. ATORVASTATIN [Concomitant]

REACTIONS (1)
  - DRUG ERUPTION [None]
